FAERS Safety Report 22705101 (Version 8)
Quarter: 2025Q3

REPORT INFORMATION
  Report Type: Report from Study
  Country: BR (occurrence: BR)
  Receive Date: 20230714
  Receipt Date: 20250829
  Transmission Date: 20251021
  Serious: Yes (Disabling, Other)
  Sender: TAKEDA
  Company Number: BR-TAKEDA-BR202030483

PATIENT
  Age: 47 Year
  Sex: Female
  Weight: 71 kg

DRUGS (16)
  1. AGALSIDASE ALFA [Suspect]
     Active Substance: AGALSIDASE ALFA
     Indication: Fabry^s disease
  2. AGALSIDASE ALFA [Suspect]
     Active Substance: AGALSIDASE ALFA
     Dosage: 14 MILLIGRAM, Q2WEEKS
  3. AGALSIDASE ALFA [Suspect]
     Active Substance: AGALSIDASE ALFA
     Dosage: UNK UNK, Q2WEEKS
  4. AGALSIDASE ALFA [Suspect]
     Active Substance: AGALSIDASE ALFA
     Dosage: UNK UNK, 2/MONTH
  5. AGALSIDASE ALFA [Suspect]
     Active Substance: AGALSIDASE ALFA
     Dosage: 14.6 MILLIGRAM, 2/WEEK
  6. AGALSIDASE ALFA [Suspect]
     Active Substance: AGALSIDASE ALFA
  7. AGALSIDASE ALFA [Suspect]
     Active Substance: AGALSIDASE ALFA
  8. LISDEXAMFETAMINE DIMESYLATE [Suspect]
     Active Substance: LISDEXAMFETAMINE DIMESYLATE
     Indication: Product used for unknown indication
  9. COVID-19 VACCINE NOS [Suspect]
     Active Substance: COVID-19 VACCINE
     Indication: Product used for unknown indication
  10. PURAN [Concomitant]
     Active Substance: LEVOTHYROXINE SODIUM
  11. ATENOLOL [Concomitant]
     Active Substance: ATENOLOL
     Dosage: UNK UNK, BID
  12. ENALAPRIL [Concomitant]
     Active Substance: ENALAPRIL
     Dosage: UNK UNK, BID
  13. Perivasc [Concomitant]
  14. VITAMIN D [Concomitant]
     Active Substance: VITAMIN D NOS
  15. VITAMIN B12 [Concomitant]
     Active Substance: CYANOCOBALAMIN
  16. OMEGA 3 [Concomitant]
     Active Substance: CAPSAICIN

REACTIONS (20)
  - Hypothyroidism [Unknown]
  - Renal failure [Unknown]
  - Cardiac failure [Unknown]
  - Fabry^s disease [Unknown]
  - Inappropriate schedule of product administration [Unknown]
  - COVID-19 [Recovered/Resolved]
  - Product availability issue [Unknown]
  - Insurance issue [Unknown]
  - Loss of personal independence in daily activities [Unknown]
  - Thrombophlebitis [Unknown]
  - Product dose omission issue [Unknown]
  - Face oedema [Unknown]
  - Malaise [Recovered/Resolved]
  - Pain [Unknown]
  - Fatigue [Unknown]
  - Pyrexia [Unknown]
  - Oedema peripheral [Unknown]
  - Pain in extremity [Unknown]
  - Pruritus [Unknown]
  - Product use issue [Unknown]

NARRATIVE: CASE EVENT DATE: 20230323
